FAERS Safety Report 24241688 (Version 3)
Quarter: 2024Q3

REPORT INFORMATION
  Report Type: Spontaneous
  Country: US (occurrence: US)
  Receive Date: 20240823
  Receipt Date: 20240923
  Transmission Date: 20241017
  Serious: Yes (Other)
  Sender: ROCHE
  Company Number: US-ROCHE-10000061087

PATIENT
  Age: 72 Year
  Sex: Male

DRUGS (3)
  1. VABYSMO [Suspect]
     Active Substance: FARICIMAB\FARICIMAB-SVOA
     Indication: Macular oedema
     Route: 065
     Dates: start: 202408
  2. VABYSMO [Suspect]
     Active Substance: FARICIMAB\FARICIMAB-SVOA
     Indication: Retinal vein occlusion
  3. EYLEA [Concomitant]
     Active Substance: AFLIBERCEPT

REACTIONS (2)
  - Retinal vein occlusion [Unknown]
  - Retinal artery occlusion [Unknown]
